FAERS Safety Report 5100581-9 (Version None)
Quarter: 2006Q3

REPORT INFORMATION
  Report Type: 
  Country: None (occurrence: None)
  Receive Date: 20060907
  Receipt Date: 20060907
  Transmission Date: 20061208
  Serious: Yes (Other)
  Sender: FDA-Public Use
  Company Number: None

PATIENT
  Age: 77 Year
  Sex: Female
  Weight: 84.8226 kg

DRUGS (10)
  1. MACROBID [Suspect]
     Indication: BLADDER IRRIGATION
     Dosage: 100 MG - 3 DAYS   2X DAILY   ORAL
     Route: 048
     Dates: start: 20060804, end: 20060806
  2. MACROBID [Suspect]
     Indication: DYSURIA
     Dosage: 100 MG - 3 DAYS   2X DAILY   ORAL
     Route: 048
     Dates: start: 20060804, end: 20060806
  3. NITROFURANTOIN [Suspect]
     Indication: ESCHERICHIA INFECTION
     Dosage: 100 MG - 5 1/2 DAYS   2X DAILY  ORAL
     Route: 048
     Dates: start: 20060816, end: 20060820
  4. ADVAIR DISKUS 100/50 [Concomitant]
  5. HYZAAR [Concomitant]
  6. LIPITOR [Concomitant]
  7. ZYRTEC [Concomitant]
  8. METFORMIN HCL [Concomitant]
  9. AMBIEN [Concomitant]
  10. FOSAMAX [Concomitant]

REACTIONS (14)
  - ABDOMINAL PAIN UPPER [None]
  - BURNING SENSATION [None]
  - CHILLS [None]
  - COUGH [None]
  - CULTURE URINE POSITIVE [None]
  - DRY MOUTH [None]
  - DYSURIA [None]
  - ERUCTATION [None]
  - ESCHERICHIA INFECTION [None]
  - HEADACHE [None]
  - NAUSEA [None]
  - POSTOPERATIVE INFECTION [None]
  - TREMOR [None]
  - VOMITING [None]
